FAERS Safety Report 17248620 (Version 1)
Quarter: 2020Q1

REPORT INFORMATION
  Report Type: Spontaneous
  Country: US (occurrence: US)
  Receive Date: 20200108
  Receipt Date: 20200108
  Transmission Date: 20200409
  Serious: No
  Sender: FDA-Public Use
  Company Number: US-LEXICON PHARMACEUTICALS, INC-19-1606-01128

PATIENT
  Sex: Female

DRUGS (2)
  1. OPIUM TINCTURE [Suspect]
     Active Substance: MORPHINE
  2. XERMELO [Suspect]
     Active Substance: TELOTRISTAT ETHYL
     Indication: CARCINOID TUMOUR OF THE LIVER
     Dates: start: 20191108

REACTIONS (2)
  - Blood potassium decreased [Not Recovered/Not Resolved]
  - Dizziness [Not Recovered/Not Resolved]
